FAERS Safety Report 20969697 (Version 1)
Quarter: 2022Q2

REPORT INFORMATION
  Report Type: Spontaneous
  Country: CA (occurrence: CA)
  Receive Date: 20220616
  Receipt Date: 20220616
  Transmission Date: 20220721
  Serious: Yes (Hospitalization, Congenital Anomaly, Other)
  Sender: FDA-Public Use
  Company Number: CA-BoehringerIngelheim-2022-BI-176723

PATIENT
  Weight: 1 kg

DRUGS (1)
  1. TELMISARTAN [Suspect]
     Active Substance: TELMISARTAN
     Indication: Foetal exposure during pregnancy
     Route: 064

REACTIONS (9)
  - Foetal exposure during pregnancy [Unknown]
  - Hypocalvaria [Unknown]
  - Limb deformity [Unknown]
  - Neonatal hypotension [Unknown]
  - Neonatal respiratory failure [Unknown]
  - Potter^s syndrome [Unknown]
  - Premature baby [Unknown]
  - Renal tubular dysfunction [Unknown]
  - Renal vein thrombosis [Unknown]
